FAERS Safety Report 8943895 (Version 1)
Quarter: 2012Q4

REPORT INFORMATION
  Report Type: Report from Study
  Country: US (occurrence: US)
  Receive Date: 20121204
  Receipt Date: 20121204
  Transmission Date: 20130627
  Serious: Yes (Other)
  Sender: FDA-Public Use
  Company Number: US-CELGENEUS-163-21880-12113231

PATIENT
  Age: 61 Year
  Sex: Male
  Weight: 85.1 kg

DRUGS (4)
  1. REVLIMID [Suspect]
     Indication: CLL
     Route: 048
     Dates: start: 201206
  2. RITUXIMAB [Suspect]
     Indication: CLL
     Dosage: 375 milligram/sq. meter
     Route: 065
     Dates: start: 20111130, end: 20120509
  3. BENDAMUSTINE [Suspect]
     Indication: CLL
     Dosage: 90 milligram/sq. meter
     Dates: start: 20111130, end: 20120509
  4. EFUDEX [Concomitant]
     Indication: DRUG USE FOR UNKNOWN INDICATION
     Route: 065

REACTIONS (1)
  - Squamous cell carcinoma of skin [Recovered/Resolved]
